FAERS Safety Report 13381359 (Version 1)
Quarter: 2017Q1

REPORT INFORMATION
  Report Type: Spontaneous
  Country: US (occurrence: US)
  Receive Date: 20170329
  Receipt Date: 20170329
  Transmission Date: 20170429
  Serious: Yes (Hospitalization, Disabling, Other)
  Sender: FDA-Public Use
  Company Number: US-ZYDUS-014241

PATIENT
  Age: 25 Year
  Sex: Male

DRUGS (2)
  1. OMEPRAZOLE. [Suspect]
     Active Substance: OMEPRAZOLE
     Indication: GASTROOESOPHAGEAL REFLUX DISEASE
     Route: 065
  2. BUPROPION/BUPROPION HYDROCHLORIDE [Suspect]
     Active Substance: BUPROPION HYDROCHLORIDE
     Indication: DEPRESSION
     Route: 065

REACTIONS (25)
  - Oedema peripheral [Unknown]
  - Enteritis [Unknown]
  - Diarrhoea [Unknown]
  - Ocular icterus [Unknown]
  - Portal hypertension [Unknown]
  - Ascites [Unknown]
  - Hepatitis cholestatic [Unknown]
  - Colitis [Unknown]
  - Abdominal discomfort [Unknown]
  - Jaundice [Unknown]
  - Haematochezia [Unknown]
  - Pyrexia [Unknown]
  - Blood alkaline phosphatase increased [Unknown]
  - Coagulopathy [Unknown]
  - Condition aggravated [Unknown]
  - Hyperbilirubinaemia [Unknown]
  - Nephrotic syndrome [Unknown]
  - Abdominal tenderness [Unknown]
  - Gastrointestinal wall thickening [Unknown]
  - Oedema mucosal [Unknown]
  - Mucosal erosion [Unknown]
  - Oedema [Unknown]
  - Nausea [Unknown]
  - Rectal tenesmus [Unknown]
  - Gastrointestinal mucosa hyperaemia [Unknown]
